FAERS Safety Report 14318145 (Version 2)
Quarter: 2018Q1

REPORT INFORMATION
  Report Type: Spontaneous
  Country: ES (occurrence: ES)
  Receive Date: 20171222
  Receipt Date: 20180112
  Transmission Date: 20180509
  Serious: Yes (Other)
  Sender: FDA-Public Use
  Company Number: ES-009507513-1712ESP007158

PATIENT
  Age: 26 Year
  Sex: Female

DRUGS (5)
  1. AMPICILLIN [Suspect]
     Active Substance: AMPICILLIN
     Indication: PRETERM PREMATURE RUPTURE OF MEMBRANES
     Dosage: 2G FOLLOWED BY 1 G EVERY 6 HOURS
     Route: 042
  2. OXYTOCIN. [Suspect]
     Active Substance: OXYTOCIN
     Indication: LABOUR INDUCTION
     Dosage: UNK
     Route: 042
  3. AMPICILLIN [Suspect]
     Active Substance: AMPICILLIN
     Dosage: 1 G, Q6H
     Route: 042
  4. BETAMETHASONE. [Suspect]
     Active Substance: BETAMETHASONE
     Indication: MATERNAL THERAPY TO ENHANCE FOETAL LUNG MATURITY
     Dosage: 500 G, Q8H
     Route: 065
  5. AZITHROMYCIN ANHYDROUS. [Suspect]
     Active Substance: AZITHROMYCIN ANHYDROUS
     Indication: PRETERM PREMATURE RUPTURE OF MEMBRANES
     Dosage: 1G IN MONODOSIS
     Route: 048

REACTIONS (4)
  - Live birth [Unknown]
  - Exposure during pregnancy [Recovered/Resolved]
  - Pathogen resistance [Unknown]
  - Amniotic cavity infection [Unknown]
